FAERS Safety Report 7470701-X (Version None)
Quarter: 2011Q2

REPORT INFORMATION
  Report Type: 
  Country: None (occurrence: None)
  Receive Date: 20110510
  Receipt Date: 20110429
  Transmission Date: 20111010
  Serious: Yes (Other)
  Sender: FDA-Public Use
  Company Number: US-BAXTER-2011BH013569

PATIENT
  Sex: Female

DRUGS (2)
  1. DIANEAL [Suspect]
     Indication: PERITONEAL DIALYSIS
     Route: 033
  2. ALCAVIS [Suspect]
     Indication: WOUND INFECTION
     Dates: start: 20110101, end: 20110401

REACTIONS (2)
  - WOUND [None]
  - THERMAL BURN [None]
